FAERS Safety Report 16316189 (Version 1)
Quarter: 2019Q2

REPORT INFORMATION
  Report Type: Spontaneous
  Country: US (occurrence: US)
  Receive Date: 20190515
  Receipt Date: 20190515
  Transmission Date: 20190711
  Serious: No
  Sender: FDA-Public Use
  Company Number: US-SA-2019SA127284

PATIENT
  Age: 64 Year
  Sex: Female

DRUGS (5)
  1. ALLEGRA [Concomitant]
     Active Substance: FEXOFENADINE HYDROCHLORIDE
  2. OMEPRAZOLE. [Suspect]
     Active Substance: OMEPRAZOLE
  3. DUPIXENT [Suspect]
     Active Substance: DUPILUMAB
     Indication: DERMATITIS ATOPIC
     Dosage: 300 MG, QOW
     Route: 058
     Dates: start: 20190424
  4. PREDNISONE. [Suspect]
     Active Substance: PREDNISONE
     Dosage: FOR 25 DAYS
  5. ZYRTEC [Concomitant]
     Active Substance: CETIRIZINE HYDROCHLORIDE

REACTIONS (9)
  - Feeling hot [Unknown]
  - Night sweats [Unknown]
  - Swelling [Recovering/Resolving]
  - Candida infection [Unknown]
  - Pruritus [Unknown]
  - Heart rate increased [Recovering/Resolving]
  - Rash generalised [Unknown]
  - Coating in mouth [Unknown]
  - Taste disorder [Unknown]
